FAERS Safety Report 16773754 (Version 3)
Quarter: 2020Q2

REPORT INFORMATION
  Report Type: Report from Study
  Country: CA (occurrence: CA)
  Receive Date: 20190904
  Receipt Date: 20200421
  Transmission Date: 20200713
  Serious: Yes (Hospitalization, Other)
  Sender: FDA-Public Use
  Company Number: PHHY2019CA064968

PATIENT
  Age: 32 Year
  Sex: Female

DRUGS (4)
  1. SANDOSTATIN LAR DEPOT [Suspect]
     Active Substance: OCTREOTIDE ACETATE
     Indication: CARCINOID TUMOUR
     Dosage: 30 MG, Q3W (EVERY 3 WEEKS)
     Route: 030
     Dates: start: 20190211
  2. SANDOSTATIN LAR DEPOT [Suspect]
     Active Substance: OCTREOTIDE ACETATE
     Dosage: 30 MG, QMO (EVERY 4 WEEKS)
     Route: 030
     Dates: start: 20190513
  3. BISOPROLOL [Concomitant]
     Active Substance: BISOPROLOL
     Indication: CARDIAC DISORDER
     Dosage: (STRENGTH: 2.5 TO 5 MG), QD
     Route: 048
     Dates: start: 2019
  4. SANDOSTATIN LAR DEPOT [Suspect]
     Active Substance: OCTREOTIDE ACETATE
     Dosage: 30 MG, Q3W
     Route: 030

REACTIONS (21)
  - Malaise [Unknown]
  - Body temperature decreased [Unknown]
  - Palpitations [Unknown]
  - Decreased appetite [Recovered/Resolved]
  - Hair growth abnormal [Unknown]
  - Feeling cold [Unknown]
  - Fatigue [Unknown]
  - Eczema [Recovered/Resolved]
  - Abdominal pain [Not Recovered/Not Resolved]
  - General physical health deterioration [Unknown]
  - Blood test abnormal [Unknown]
  - Pain [Unknown]
  - Hypoglycaemia [Unknown]
  - Pancreatitis acute [Unknown]
  - Pyrexia [Unknown]
  - Inappropriate schedule of product administration [Unknown]
  - Asthenia [Unknown]
  - Mental impairment [Unknown]
  - Pruritus [Recovered/Resolved]
  - Hypertension [Unknown]
  - Fatigue [Recovered/Resolved]

NARRATIVE: CASE EVENT DATE: 20190318
